FAERS Safety Report 23356293 (Version 1)
Quarter: 2024Q1

REPORT INFORMATION
  Report Type: Spontaneous
  Country: CA (occurrence: CA)
  Receive Date: 20240102
  Receipt Date: 20240102
  Transmission Date: 20240410
  Serious: Yes (Other)
  Sender: FDA-Public Use
  Company Number: CA-ALKEM LABORATORIES LIMITED-CA-ALKEM-2023-16698

PATIENT
  Age: 23 Year
  Sex: Female

DRUGS (2)
  1. TOPIRAMATE [Interacting]
     Active Substance: TOPIRAMATE
     Indication: Bipolar disorder
     Dosage: UNK
     Route: 065
  2. LAMOTRIGINE [Interacting]
     Active Substance: LAMOTRIGINE
     Indication: Bipolar disorder
     Dosage: 50 MILLIGRAM
     Route: 065

REACTIONS (3)
  - Neutropenia [Unknown]
  - Drug interaction [Unknown]
  - Leukopenia [Recovered/Resolved]
